FAERS Safety Report 5625516-1 (Version None)
Quarter: 2008Q1

REPORT INFORMATION
  Report Type: 
  Country: None (occurrence: None)
  Receive Date: 20080211
  Receipt Date: 20080211
  Transmission Date: 20080703
  Serious: Yes (Hospitalization)
  Sender: FDA-Public Use
  Company Number: None

PATIENT
  Age: 59 Year
  Sex: Male
  Weight: 85.2 kg

DRUGS (2)
  1. ASPIRIN [Suspect]
     Indication: PAIN
     Dosage: 742MG QID SQ
     Route: 058
     Dates: start: 20080101, end: 20080115
  2. NAPROXEN [Suspect]
     Indication: PAIN
     Dosage: 400MG PRN PO
     Route: 048
     Dates: start: 20080101, end: 20080115

REACTIONS (5)
  - ABDOMINAL DISCOMFORT [None]
  - ANAEMIA [None]
  - DIZZINESS [None]
  - FATIGUE [None]
  - GASTRIC HAEMORRHAGE [None]
